FAERS Safety Report 6735474-4 (Version None)
Quarter: 2010Q2

REPORT INFORMATION
  Report Type: 
  Country: None (occurrence: None)
  Receive Date: 20100521
  Receipt Date: 20100517
  Transmission Date: 20101027
  Serious: Yes (Hospitalization, Other)
  Sender: FDA-Public Use
  Company Number: JP-BAYER-200911169BYL

PATIENT
  Age: 79 Year
  Sex: Male
  Weight: 50 kg

DRUGS (13)
  1. NEXAVAR [Suspect]
     Indication: RENAL CELL CARCINOMA STAGE IV
     Dosage: TOTAL DAILY DOSE: 800 MG  UNIT DOSE: 200 MG
     Route: 048
     Dates: start: 20090117, end: 20090129
  2. NEXAVAR [Suspect]
     Dosage: UNIT DOSE: 200 MG
     Route: 048
     Dates: start: 20090130, end: 20090414
  3. NEXAVAR [Suspect]
     Dosage: UNIT DOSE: 200 MG
     Route: 048
     Dates: start: 20091102, end: 20100202
  4. GLYCYRON [Concomitant]
     Indication: HEPATIC FUNCTION ABNORMAL
     Route: 048
     Dates: start: 20090415, end: 20091102
  5. GLYCYRON [Concomitant]
     Route: 048
     Dates: start: 20091102, end: 20100202
  6. LAC-B [Concomitant]
     Indication: HEPATIC FUNCTION ABNORMAL
     Route: 048
     Dates: start: 20091102, end: 20100202
  7. LAC-B [Concomitant]
     Route: 048
     Dates: start: 20090415, end: 20091102
  8. SELBEX [Concomitant]
     Indication: HEPATIC FUNCTION ABNORMAL
     Route: 048
     Dates: start: 20090415, end: 20091102
  9. SELBEX [Concomitant]
     Route: 048
     Dates: start: 20091102, end: 20100202
  10. MUCODYNE [Concomitant]
     Indication: HEPATIC FUNCTION ABNORMAL
     Route: 048
     Dates: start: 20090415, end: 20090602
  11. MUCODYNE [Concomitant]
     Route: 048
     Dates: start: 20090602, end: 20091102
  12. MUCODYNE [Concomitant]
     Route: 048
     Dates: start: 20091102, end: 20100202
  13. OIF [Concomitant]
     Dosage: TOTAL DAILY DOSE: 500 MIU  UNIT DOSE: 500 MIU
     Route: 042
     Dates: start: 20090425, end: 20091027

REACTIONS (6)
  - BLOOD AMYLASE INCREASED [None]
  - HAEMORRHAGIC DISORDER [None]
  - HEPATIC FUNCTION ABNORMAL [None]
  - HYPERTENSION [None]
  - LIVER FUNCTION TEST ABNORMAL [None]
  - PALMAR-PLANTAR ERYTHRODYSAESTHESIA SYNDROME [None]
